FAERS Safety Report 21634335 (Version 2)
Quarter: 2022Q4

REPORT INFORMATION
  Report Type: Report from Study
  Country: US (occurrence: US)
  Receive Date: 20221123
  Receipt Date: 20221125
  Transmission Date: 20230113
  Serious: No
  Sender: FDA-Public Use
  Company Number: US-ABBVIE-4171780

PATIENT
  Sex: Female

DRUGS (2)
  1. HUMIRA [Suspect]
     Active Substance: ADALIMUMAB
     Indication: Product used for unknown indication
     Route: 058
  2. SKYRIZI [Suspect]
     Active Substance: RISANKIZUMAB-RZAA
     Indication: Psoriasis
     Route: 058

REACTIONS (6)
  - Back pain [Unknown]
  - Spinal stenosis [Unknown]
  - Malaise [Unknown]
  - Laboratory test [Unknown]
  - Drug ineffective [Unknown]
  - Physiotherapy [Unknown]

NARRATIVE: CASE EVENT DATE: 20210101
